FAERS Safety Report 10781804 (Version 1)
Quarter: 2015Q1

REPORT INFORMATION
  Report Type: Spontaneous
  Country: DE (occurrence: DE)
  Receive Date: 20150210
  Receipt Date: 20150210
  Transmission Date: 20150721
  Serious: Yes (Congenital Anomaly, Other)
  Sender: FDA-Public Use
  Company Number: DE-TEVA-538121GER

PATIENT
  Age: 1 Day
  Sex: Male

DRUGS (5)
  1. CITALOPRAM [Suspect]
     Active Substance: CITALOPRAM HYDROBROMIDE
     Indication: SCHIZOAFFECTIVE DISORDER
     Dosage: 20 MG/D / UNTIL GW 36+5: 20 MG/D, UNTIL DELIVERY: 10 MG/D
     Route: 064
     Dates: start: 20140117, end: 20141107
  2. ANTI-D-IMMUNGLOBULIN VOM MENSCHEN [Concomitant]
     Indication: PROPHYLAXIS AGAINST RH ISOIMMUNISATION
     Route: 064
     Dates: start: 20140610, end: 20140610
  3. QUILONUM RETARD [Suspect]
     Active Substance: LITHIUM CARBONATE
     Indication: SCHIZOAFFECTIVE DISORDER
     Dosage: 1800 MG/D / VARYING DOSAGES
     Route: 064
     Dates: start: 20140117, end: 20141107
  4. CLOZAPIN [Suspect]
     Active Substance: CLOZAPINE
     Indication: SCHIZOAFFECTIVE DISORDER
     Dosage: 1 MILLIGRAM DAILY;
     Route: 064
     Dates: start: 20140117, end: 20141107
  5. FOLSAN [Concomitant]
     Active Substance: FOLIC ACID
     Indication: PROPHYLAXIS OF NEURAL TUBE DEFECT
     Route: 064

REACTIONS (4)
  - Ventricular septal defect [Not Recovered/Not Resolved]
  - Small for dates baby [Unknown]
  - Atrial septal defect [Not Recovered/Not Resolved]
  - Foetal exposure during pregnancy [Unknown]

NARRATIVE: CASE EVENT DATE: 20141107
